FAERS Safety Report 13166960 (Version 1)
Quarter: 2017Q1

REPORT INFORMATION
  Report Type: Spontaneous
  Country: US (occurrence: US)
  Receive Date: 20170130
  Receipt Date: 20170130
  Transmission Date: 20170428
  Serious: Yes (Hospitalization)
  Sender: FDA-Public Use
  Company Number: None

PATIENT
  Age: 61 Year
  Sex: Male
  Weight: 110.1 kg

DRUGS (1)
  1. LENALIDOMIDE (CC-5013) [Suspect]
     Active Substance: LENALIDOMIDE
     Dates: end: 20170116

REACTIONS (11)
  - Hypotension [None]
  - Acute kidney injury [None]
  - Pancreatitis [None]
  - Haemodialysis [None]
  - Bacterial test positive [None]
  - Dyspnoea [None]
  - Hypereosinophilic syndrome [None]
  - Azotaemia [None]
  - Hepatic function abnormal [None]
  - Thrombocytopenia [None]
  - Bacterial infection [None]

NARRATIVE: CASE EVENT DATE: 20170117
